FAERS Safety Report 12211936 (Version 1)
Quarter: 2016Q1

REPORT INFORMATION
  Report Type: Spontaneous
  Country: US (occurrence: US)
  Receive Date: 20160325
  Receipt Date: 20160325
  Transmission Date: 20160526
  Serious: Yes (Other)
  Sender: FDA-Public Use
  Company Number: US-ABBVIE-16P-163-1589585-00

PATIENT
  Sex: Female

DRUGS (1)
  1. LUPRON DEPOT [Suspect]
     Active Substance: LEUPROLIDE ACETATE
     Indication: ENDOMETRIOSIS
     Route: 050
     Dates: start: 201407

REACTIONS (15)
  - Fatigue [Unknown]
  - Diarrhoea [Unknown]
  - Exposure during pregnancy [Unknown]
  - Depression [Unknown]
  - Malaise [Unknown]
  - Premature labour [Unknown]
  - Vomiting [Unknown]
  - Haemorrhage in pregnancy [Unknown]
  - Back pain [Unknown]
  - Drug ineffective [Unknown]
  - Feeling abnormal [Unknown]
  - Peripheral swelling [Unknown]
  - Chest pain [Unknown]
  - Migraine [Unknown]
  - Tooth fracture [Unknown]

NARRATIVE: CASE EVENT DATE: 201502
